FAERS Safety Report 16322844 (Version 2)
Quarter: 2020Q1

REPORT INFORMATION
  Report Type: Report from Study
  Country: None (occurrence: CA)
  Receive Date: 20190516
  Receipt Date: 20200331
  Transmission Date: 20200409
  Serious: Yes (Other)
  Sender: FDA-Public Use
  Company Number: CA-ABBVIE-19K-028-2783662-00

PATIENT
  Sex: Male

DRUGS (4)
  1. HUMIRA [Suspect]
     Active Substance: ADALIMUMAB
     Indication: COLITIS ULCERATIVE
     Route: 058
     Dates: start: 20140725
  2. HUMIRA [Suspect]
     Active Substance: ADALIMUMAB
     Route: 058
  3. PREDNISONE. [Suspect]
     Active Substance: PREDNISONE
     Indication: COLITIS ULCERATIVE
     Route: 065
     Dates: start: 20141008
  4. SALOFALK [Concomitant]
     Indication: COLITIS ULCERATIVE

REACTIONS (12)
  - Drug dependence [Not Recovered/Not Resolved]
  - Hypertension [Not Recovered/Not Resolved]
  - Crohn^s disease [Unknown]
  - Abdominal pain upper [Recovered/Resolved]
  - Drug resistance [Not Recovered/Not Resolved]
  - Haematochezia [Not Recovered/Not Resolved]
  - Blood iron decreased [Not Recovered/Not Resolved]
  - Haemoglobin decreased [Not Recovered/Not Resolved]
  - Drug ineffective [Not Recovered/Not Resolved]
  - Frequent bowel movements [Not Recovered/Not Resolved]
  - Colitis ulcerative [Recovering/Resolving]
  - Inflammatory bowel disease [Unknown]
